FAERS Safety Report 9514611 (Version 1)
Quarter: 2013Q3

REPORT INFORMATION
  Report Type: Spontaneous
  Country: JP (occurrence: None)
  Receive Date: 20130906
  Receipt Date: 20130906
  Transmission Date: 20140515
  Serious: Yes (Other)
  Sender: FDA-Public Use
  Company Number: JP-ZYDUS-002092

PATIENT
  Age: 66 Year
  Sex: Male

DRUGS (2)
  1. AMLODIPINE [Suspect]
     Route: 042
  2. NITROGLYCERIN [Suspect]
     Dosage: 25.00 MG 1.00 TIMES PER 1.0 DAYS TRANSDERMAL
     Route: 062

REACTIONS (10)
  - Cardio-respiratory arrest [None]
  - Arteriospasm coronary [None]
  - Drug withdrawal syndrome [None]
  - Anastomotic leak [None]
  - Post procedural complication [None]
  - Ventricular fibrillation [None]
  - Electrocardiogram ST segment elevation [None]
  - Nervous system disorder [None]
  - Stress [None]
  - Drug tolerance increased [None]
